FAERS Safety Report 11496180 (Version 1)
Quarter: 2015Q3

REPORT INFORMATION
  Report Type: Spontaneous
  Country: US (occurrence: US)
  Receive Date: 20150911
  Receipt Date: 20150911
  Transmission Date: 20151125
  Serious: Yes (Hospitalization)
  Sender: FDA-Public Use
  Company Number: US-IPCA LABORATORIES LIMITED-IPC201509-000579

PATIENT
  Age: 61 Year
  Sex: Male

DRUGS (3)
  1. ATENOLOL. [Suspect]
     Active Substance: ATENOLOL
  2. VALSARTAN. [Suspect]
     Active Substance: VALSARTAN
  3. AMLODIPINE BESILATE [Suspect]
     Active Substance: AMLODIPINE BESYLATE

REACTIONS (2)
  - Overdose [Unknown]
  - Shock [Recovered/Resolved]
